FAERS Safety Report 19515050 (Version 1)
Quarter: 2021Q3

REPORT INFORMATION
  Report Type: Spontaneous
  Country: US (occurrence: US)
  Receive Date: 20210709
  Receipt Date: 20210709
  Transmission Date: 20211014
  Serious: No
  Sender: FDA-Public Use
  Company Number: US-SA-2021SA218820

PATIENT

DRUGS (2)
  1. MULTAQ [Suspect]
     Active Substance: DRONEDARONE
     Indication: ATRIAL FLUTTER
  2. MULTAQ [Suspect]
     Active Substance: DRONEDARONE
     Indication: ATRIAL FIBRILLATION
     Dosage: 1 DF
     Route: 065

REACTIONS (5)
  - Insomnia [Unknown]
  - Exploding head syndrome [Unknown]
  - Restlessness [Unknown]
  - Headache [Unknown]
  - Adverse drug reaction [Unknown]
